FAERS Safety Report 21445901 (Version 1)
Quarter: 2022Q4

REPORT INFORMATION
  Report Type: Spontaneous
  Country: US (occurrence: None)
  Receive Date: 20221011
  Receipt Date: 20221011
  Transmission Date: 20230112
  Serious: Yes (Hospitalization)
  Sender: FDA-Public Use
  Company Number: None

PATIENT
  Age: 66 Year
  Sex: Female
  Weight: 62.55 kg

DRUGS (19)
  1. LITHIUM [Suspect]
     Active Substance: LITHIUM
     Indication: Bipolar disorder
     Dosage: OTHER QUANTITY : 1 CAPSULE(S);?FREQUENCY : TWICE A DAY;?
     Route: 048
  2. LITHIUM [Suspect]
     Active Substance: LITHIUM
     Indication: Mania
  3. ALBUTEROL [Concomitant]
  4. AMLODIPINE [Concomitant]
     Active Substance: AMLODIPINE BESYLATE
  5. ATORVASTATIN [Concomitant]
     Active Substance: ATORVASTATIN
  6. CARVEDILOL [Concomitant]
  7. FLUOXETINE [Concomitant]
     Active Substance: FLUOXETINE HYDROCHLORIDE
  8. HYDRALAZINE [Concomitant]
     Active Substance: HYDRALAZINE HYDROCHLORIDE
  9. ISOSORBIDE MONO [Concomitant]
  10. SEVELAMER [Concomitant]
     Active Substance: SEVELAMER
  11. SPIRIVA [Concomitant]
     Active Substance: TIOTROPIUM BROMIDE MONOHYDRATE
  12. ALPRAZOLAM [Concomitant]
     Active Substance: ALPRAZOLAM
  13. NITROGLYCERIN [Concomitant]
     Active Substance: NITROGLYCERIN
  14. ASPIRIN [Concomitant]
     Active Substance: ASPIRIN
  15. BENADRYL [Concomitant]
  16. PEPCID COMPLETE [Concomitant]
     Active Substance: CALCIUM CARBONATE\FAMOTIDINE\MAGNESIUM HYDROXIDE
  17. TYLENOL [Concomitant]
  18. CANABIS [Concomitant]
  19. VITAMIN C [Concomitant]
     Active Substance: ASCORBIC ACID

REACTIONS (3)
  - Pneumonia [None]
  - Dialysis [None]
  - Renal failure [None]

NARRATIVE: CASE EVENT DATE: 20210401
